FAERS Safety Report 8109047-5 (Version None)
Quarter: 2012Q1

REPORT INFORMATION
  Report Type: 
  Country: None (occurrence: None)
  Receive Date: 20120202
  Receipt Date: 20120103
  Transmission Date: 20120608
  Serious: No
  Sender: FDA-Public Use
  Company Number: US-AMGEN-USASP2012000209

PATIENT
  Age: 58 Year
  Sex: Female

DRUGS (3)
  1. ENBREL [Suspect]
     Indication: RHEUMATOID ARTHRITIS
     Dosage: 50 MG, QWK
     Dates: start: 20090615
  2. ENBREL [Suspect]
     Indication: OSTEOARTHRITIS
  3. METHOTREXATE [Concomitant]
     Dosage: UNK
     Dates: start: 20090101

REACTIONS (4)
  - FATIGUE [None]
  - BONE PAIN [None]
  - TOXICITY TO VARIOUS AGENTS [None]
  - PYREXIA [None]
